FAERS Safety Report 10277101 (Version 3)
Quarter: 2014Q3

REPORT INFORMATION
  Report Type: Spontaneous
  Country: US (occurrence: US)
  Receive Date: 20140703
  Receipt Date: 20140714
  Transmission Date: 20150326
  Serious: No
  Sender: FDA-Public Use
  Company Number: US-AMGEN-USASP2014047448

PATIENT
  Age: 73 Year
  Sex: Female

DRUGS (1)
  1. ENBREL [Suspect]
     Active Substance: ETANERCEPT
     Indication: RHEUMATOID ARTHRITIS
     Dosage: 50 MG, QWK
     Route: 065
     Dates: start: 20140602

REACTIONS (7)
  - Oedema mouth [Not Recovered/Not Resolved]
  - Local swelling [Not Recovered/Not Resolved]
  - Toothache [Not Recovered/Not Resolved]
  - Tongue injury [Not Recovered/Not Resolved]
  - Tongue coated [Not Recovered/Not Resolved]
  - Tongue discolouration [Not Recovered/Not Resolved]
  - Device breakage [Not Recovered/Not Resolved]

NARRATIVE: CASE EVENT DATE: 201406
